FAERS Safety Report 24177849 (Version 5)
Quarter: 2024Q4

REPORT INFORMATION
  Report Type: Spontaneous
  Country: PT (occurrence: PT)
  Receive Date: 20240806
  Receipt Date: 20241007
  Transmission Date: 20250114
  Serious: Yes (Life-Threatening, Hospitalization, Other)
  Sender: AUROBINDO
  Company Number: PT-AUROBINDO-AUR-APL-2024-037247

PATIENT
  Age: 34 Year
  Sex: Male

DRUGS (1)
  1. SILDENAFIL CITRATE [Suspect]
     Active Substance: SILDENAFIL CITRATE
     Indication: Substance use
     Dosage: 25 MILLIGRAM, 1 TOTAL
     Route: 065

REACTIONS (7)
  - Aortic dissection [Unknown]
  - Syncope [Recovered/Resolved]
  - Hypotension [Unknown]
  - Substance use [Unknown]
  - Intentional product misuse [Unknown]
  - Hypertension [Unknown]
  - Intentional product use issue [Unknown]
